FAERS Safety Report 4809331-4 (Version None)
Quarter: 2005Q4

REPORT INFORMATION
  Report Type: 
  Country: None (occurrence: None)
  Receive Date: 20051021
  Receipt Date: 20010924
  Transmission Date: 20060501
  Serious: No
  Sender: FDA-Public Use
  Company Number: US_011074642

PATIENT
  Age: 70 Year
  Sex: Male

DRUGS (4)
  1. ZYPREXA [Suspect]
     Indication: BIPOLAR DISORDER
     Dosage: 10 MG/1 DAY
     Dates: start: 20010701
  2. PLAVIX [Concomitant]
  3. LITHIUM [Concomitant]
  4. IRON [Concomitant]

REACTIONS (1)
  - PLATELET COUNT DECREASED [None]
